FAERS Safety Report 22197270 (Version 2)
Quarter: 2023Q2

REPORT INFORMATION
  Report Type: Spontaneous
  Country: PL (occurrence: PL)
  Receive Date: 20230411
  Receipt Date: 20230424
  Transmission Date: 20230721
  Serious: Yes (Hospitalization, Other)
  Sender: FDA-Public Use
  Company Number: PL-PFM-2023-01867

PATIENT
  Age: 5 Year
  Sex: Female

DRUGS (17)
  1. NAVELBINE [Suspect]
     Active Substance: VINORELBINE TARTRATE
     Indication: Leukoencephalopathy
     Dosage: 20 MILLIGRAM/SQ. METER, BIWEEKLY
     Route: 042
  2. NAVELBINE [Suspect]
     Active Substance: VINORELBINE TARTRATE
     Indication: Cytomegalovirus chorioretinitis
     Dosage: 20 MG/M2/ DAY, 30 MININFUSIONFOR1DAY, REPEATED Q3W
     Route: 042
  3. NAVELBINE [Suspect]
     Active Substance: VINORELBINE TARTRATE
     Dosage: 20 MILLIGRAM/SQ. METER
     Route: 042
  4. METHOTREXATE [Suspect]
     Active Substance: METHOTREXATE
     Indication: Cytomegalovirus chorioretinitis
     Dosage: 8 GRAM PER SQUARE METRE
     Route: 065
  5. METHOTREXATE [Suspect]
     Active Substance: METHOTREXATE
     Indication: Leukoencephalopathy
  6. CYCLOPHOSPHAMIDE [Suspect]
     Active Substance: CYCLOPHOSPHAMIDE
     Indication: Leukoencephalopathy
     Dosage: 4 GRAM PER SQUARE METRE
     Route: 065
  7. CYCLOPHOSPHAMIDE [Suspect]
     Active Substance: CYCLOPHOSPHAMIDE
     Indication: Cytomegalovirus chorioretinitis
  8. DEXAMETHASONE [Suspect]
     Active Substance: DEXAMETHASONE
     Indication: Cytomegalovirus chorioretinitis
     Dosage: 4 MILLIGRAM, QD
     Route: 065
  9. DEXAMETHASONE [Suspect]
     Active Substance: DEXAMETHASONE
     Indication: Leukoencephalopathy
  10. LOMUSTINE [Suspect]
     Active Substance: LOMUSTINE
     Indication: Leukoencephalopathy
     Dosage: 80 MG/M2 REPEATED EVERY 9 WEEKS
     Route: 065
  11. LOMUSTINE [Suspect]
     Active Substance: LOMUSTINE
     Indication: Cytomegalovirus chorioretinitis
  12. CARBOPLATIN [Suspect]
     Active Substance: CARBOPLATIN
     Indication: Leukoencephalopathy
     Dosage: 800 MILLIGRAM/SQ. METER
     Route: 065
  13. CARBOPLATIN [Suspect]
     Active Substance: CARBOPLATIN
     Indication: Cytomegalovirus chorioretinitis
  14. THIOTEPA [Concomitant]
     Active Substance: THIOTEPA
     Indication: Leukoencephalopathy
     Dosage: 300 MILLIGRAM/SQ. METER, QD
     Route: 065
  15. THIOTEPA [Concomitant]
     Active Substance: THIOTEPA
     Indication: Cytomegalovirus chorioretinitis
  16. ETOPOSIDE [Concomitant]
     Active Substance: ETOPOSIDE
     Indication: Cytomegalovirus chorioretinitis
     Dosage: 2.4 GRAM PER SQUARE METRE
     Route: 065
  17. ETOPOSIDE [Concomitant]
     Active Substance: ETOPOSIDE
     Indication: Leukoencephalopathy

REACTIONS (14)
  - Hyponatraemia [Unknown]
  - Thrombocytopenia [Unknown]
  - Hydrocephalus [Unknown]
  - Blindness [Unknown]
  - Hypothyroidism [Unknown]
  - Glucocorticoid deficiency [Unknown]
  - Retinopathy [Unknown]
  - Cytomegalovirus infection [Unknown]
  - Hypophysitis [Unknown]
  - Hypopituitarism [Unknown]
  - Asthenia [Unknown]
  - Hepatic enzyme increased [Unknown]
  - Off label use [Unknown]
  - Product use in unapproved indication [Unknown]
